FAERS Safety Report 7095413-6 (Version None)
Quarter: 2010Q4

REPORT INFORMATION
  Report Type: 
  Country: None (occurrence: None)
  Receive Date: 20101102
  Receipt Date: 20101025
  Transmission Date: 20110411
  Serious: Yes (Life-Threatening, Hospitalization)
  Sender: FDA-Public Use
  Company Number: 101053-2

PATIENT
  Sex: Male

DRUGS (1)
  1. ETOPOSIDE [Suspect]
     Dates: start: 20090622

REACTIONS (5)
  - CARDIOVASCULAR INSUFFICIENCY [None]
  - HAEMOGLOBIN DECREASED [None]
  - MICROCOCCUS TEST POSITIVE [None]
  - PERICARDIAL HAEMORRHAGE [None]
  - PLEURAL EFFUSION [None]
